FAERS Safety Report 18598144 (Version 1)
Quarter: 2020Q4

REPORT INFORMATION
  Report Type: Spontaneous
  Country: TH (occurrence: TH)
  Receive Date: 20201210
  Receipt Date: 20201210
  Transmission Date: 20210114
  Serious: Yes (Other)
  Sender: FDA-Public Use
  Company Number: TH-AMGEN-THASP2020200262

PATIENT
  Age: 58 Year
  Sex: Female

DRUGS (2)
  1. AMITRIPTYLINE [Concomitant]
     Active Substance: AMITRIPTYLINE
     Indication: MIGRAINE
     Dosage: UNK
     Route: 065
  2. AIMOVIG [Suspect]
     Active Substance: ERENUMAB-AOOE
     Indication: MIGRAINE
     Dosage: 70 MILLIGRAM
     Route: 058
     Dates: start: 20201130

REACTIONS (3)
  - Hypertension [Unknown]
  - Urinary incontinence [Unknown]
  - Syncope [Unknown]

NARRATIVE: CASE EVENT DATE: 20201201
